FAERS Safety Report 5929827-1 (Version None)
Quarter: 2008Q4

REPORT INFORMATION
  Report Type: 
  Country: None (occurrence: None)
  Receive Date: 20081024
  Receipt Date: 20081014
  Transmission Date: 20090506
  Serious: Yes (Hospitalization)
  Sender: FDA-Public Use
  Company Number: CH-PFIZER INC-2008083215

PATIENT
  Sex: Female

DRUGS (1)
  1. SUPRACYCLIN TABLET [Suspect]

REACTIONS (1)
  - MYALGIA [None]
